FAERS Safety Report 5604151-5 (Version None)
Quarter: 2008Q1

REPORT INFORMATION
  Report Type: 
  Country: None (occurrence: None)
  Receive Date: 20080128
  Receipt Date: 20080118
  Transmission Date: 20080703
  Serious: Yes (Other)
  Sender: FDA-Public Use
  Company Number: PHEH2008US01023

PATIENT
  Sex: Female

DRUGS (1)
  1. ELIDEL [Suspect]
     Indication: DERMATITIS
     Dosage: UNK, UNK
     Route: 061
     Dates: start: 20050101

REACTIONS (1)
  - ACUTE LYMPHOCYTIC LEUKAEMIA [None]
